FAERS Safety Report 6392933-4 (Version None)
Quarter: 2009Q4

REPORT INFORMATION
  Report Type: 
  Country: None (occurrence: None)
  Receive Date: 20091007
  Receipt Date: 20090921
  Transmission Date: 20100525
  Serious: No
  Sender: FDA-Public Use
  Company Number: US-ALLERGAN-0913165US

PATIENT
  Sex: Female

DRUGS (4)
  1. LATISSE [Suspect]
     Indication: HYPOTRICHOSIS
     Dosage: UNK
     Route: 061
  2. LATISSE [Suspect]
     Dosage: UNK
     Route: 061
  3. MASCARA [Concomitant]
  4. EYELINER [Concomitant]

REACTIONS (1)
  - MADAROSIS [None]
